FAERS Safety Report 7450663-1 (Version None)
Quarter: 2011Q2

REPORT INFORMATION
  Report Type: 
  Country: None (occurrence: None)
  Receive Date: 20110502
  Receipt Date: 20110418
  Transmission Date: 20111010
  Serious: Yes (Hospitalization)
  Sender: FDA-Public Use
  Company Number: NL-MYLANLABS-2011S1008307

PATIENT
  Age: 17 Year
  Sex: Female
  Weight: 55 kg

DRUGS (16)
  1. LACTULOSE [Concomitant]
     Dosage: 1 DD 20ML
     Route: 048
  2. NADROPARIN CALCIUM [Concomitant]
     Dosage: 1 DD 2850 IE
     Route: 058
  3. ROCURONIUM BROMIDE [Concomitant]
     Route: 042
  4. FUROSEMIDE [Concomitant]
     Dosage: 20-40MG
     Route: 042
  5. ACTRAPID [Concomitant]
     Dosage: 10-100 IU/KG/H
     Route: 065
  6. CEFUROXIME [Concomitant]
     Indication: PNEUMONIA
     Dosage: 3 DD 2G
     Route: 042
  7. ALIMEMAZINE [Concomitant]
     Dosage: DAY 2, 8-12
     Route: 048
  8. DOMPERIDONE [Concomitant]
     Dosage: 3 DD 20 MG
     Route: 048
  9. AMOXI-CLAVULANICO [Suspect]
     Indication: PNEUMONIA
     Dosage: 4 DD 1650MG
     Route: 042
  10. PROPOFOL [Concomitant]
     Dosage: PRN TOTAL 60MG
     Route: 065
  11. CLARITHROMYCIN [Suspect]
     Indication: PNEUMONIA
     Dosage: 2 DD 500MG
     Route: 048
  12. OMEPRAZOLE [Concomitant]
     Dosage: 1 DD 40MG
     Route: 048
  13. ACETAMINOPHEN [Suspect]
     Dosage: AVE 40 NMOL/ML/DAY; MAX 90 NMOL/ML/DAY
     Route: 054
  14. BROMHEXINE [Concomitant]
     Dosage: 1 DD 16MG
     Route: 048
  15. LEVOCARNITINE [Concomitant]
     Dosage: 1 DD 1000MG
     Route: 048
  16. FENTANYL [Concomitant]
     Dosage: PRN TOTAL 150MICROG
     Route: 065

REACTIONS (2)
  - MULTI-ORGAN FAILURE [None]
  - ACUTE HEPATIC FAILURE [None]
